FAERS Safety Report 16060764 (Version 2)
Quarter: 2019Q1

REPORT INFORMATION
  Report Type: Spontaneous
  Country: US (occurrence: US)
  Receive Date: 20190312
  Receipt Date: 20190326
  Transmission Date: 20190418
  Serious: Yes (Hospitalization, Other)
  Sender: FDA-Public Use
  Company Number: US-UNITED THERAPEUTICS-UNT-2019-004089

PATIENT
  Age: 41 Year
  Sex: Female

DRUGS (3)
  1. REMODULIN [Suspect]
     Active Substance: TREPROSTINIL
     Dosage: 0.0139 ?G/KG, CONTINUING
     Route: 058
     Dates: start: 20190215
  2. REMODULIN [Suspect]
     Active Substance: TREPROSTINIL
     Dosage: 0.0148 ?G/KG, CONTINUING
     Route: 058
     Dates: start: 20190216
  3. REMODULIN [Suspect]
     Active Substance: TREPROSTINIL
     Indication: PULMONARY ARTERIAL HYPERTENSION
     Dosage: 0.0157 ?G/KG, CONTINUING
     Route: 058

REACTIONS (7)
  - Headache [Unknown]
  - Asthenia [Unknown]
  - Diarrhoea [Unknown]
  - Sepsis [Unknown]
  - Nausea [Unknown]
  - Arthralgia [Unknown]
  - Chills [Unknown]

NARRATIVE: CASE EVENT DATE: 20190303
